FAERS Safety Report 23878011 (Version 1)
Quarter: 2024Q2

REPORT INFORMATION
  Report Type: Spontaneous
  Country: CA (occurrence: CA)
  Receive Date: 20240521
  Receipt Date: 20240521
  Transmission Date: 20240715
  Serious: Yes (Life-Threatening)
  Sender: FDA-Public Use
  Company Number: None

PATIENT
  Age: 67 Year
  Sex: Female

DRUGS (1)
  1. CISPLATIN [Suspect]
     Active Substance: CISPLATIN
     Indication: Product used for unknown indication
     Dosage: STRENGTH: 1MG/ML; LIQUID INTRAVENOUS

REACTIONS (3)
  - Acute kidney injury [Unknown]
  - Haemofiltration [Unknown]
  - Subacute kidney injury [Unknown]
